FAERS Safety Report 5416466-4 (Version None)
Quarter: 2007Q3

REPORT INFORMATION
  Report Type: 
  Country: None (occurrence: None)
  Receive Date: 20070814
  Receipt Date: 20070806
  Transmission Date: 20080115
  Serious: Yes (Hospitalization)
  Sender: FDA-Public Use
  Company Number: GXKR2007DE06742

PATIENT
  Age: 68 Year
  Sex: Male
  Weight: 65 kg

DRUGS (1)
  1. CLOZAPIN HEXAL (NGX)(CLOZAPINE) TABLET, 25MG [Suspect]
     Indication: PARKINSON'S DISEASE
     Dosage: 37.5 MG, QD, ORAL
     Route: 048
     Dates: start: 20070731

REACTIONS (4)
  - CONDITION AGGRAVATED [None]
  - DELUSIONAL PERCEPTION [None]
  - HALLUCINATION [None]
  - PLEUROTHOTONUS [None]
